FAERS Safety Report 23405511 (Version 1)
Quarter: 2024Q1

REPORT INFORMATION
  Report Type: Spontaneous
  Country: US (occurrence: US)
  Receive Date: 20240116
  Receipt Date: 20240116
  Transmission Date: 20240410
  Serious: No
  Sender: FDA-Public Use
  Company Number: US-TAKEDA-2024TUS003565

PATIENT
  Sex: Female
  Weight: 61 kg

DRUGS (3)
  1. ENTYVIO [Suspect]
     Active Substance: VEDOLIZUMAB
     Indication: Colitis ulcerative
     Dosage: 300 MILLIGRAM, Q4WEEKS
     Route: 042
     Dates: start: 2021
  2. CELLCEPT [Concomitant]
     Active Substance: MYCOPHENOLATE MOFETIL
     Indication: Renal disorder
     Dosage: 500 MILLIGRAM, QD
  3. CALCITRIOL [Concomitant]
     Active Substance: CALCITRIOL
     Indication: Renal disorder
     Dosage: 2.5 MILLIGRAM, QD

REACTIONS (2)
  - No adverse event [Unknown]
  - Off label use [Unknown]
